FAERS Safety Report 9061883 (Version 1)
Quarter: 2013Q1

REPORT INFORMATION
  Report Type: Report from Study
  Country: US (occurrence: US)
  Receive Date: 20130129
  Receipt Date: 20130129
  Transmission Date: 20140127
  Serious: No
  Sender: FDA-Public Use
  Company Number: US-ABBOTT-12P-163-0939465-00

PATIENT
  Age: 50 Year
  Sex: Female

DRUGS (3)
  1. HUMIRA 40 MG/0.8 ML PEN [Suspect]
     Indication: RHEUMATOID ARTHRITIS
     Dates: start: 20120329, end: 20120426
  2. SYNTHROID [Concomitant]
     Indication: HYPOTHYROIDISM
  3. WATER PILL [Concomitant]
     Indication: OEDEMA PERIPHERAL

REACTIONS (2)
  - Rash generalised [Recovering/Resolving]
  - Hypersensitivity [Recovering/Resolving]
